FAERS Safety Report 16788892 (Version 1)
Quarter: 2019Q3

REPORT INFORMATION
  Report Type: Spontaneous
  Country: NL (occurrence: NL)
  Receive Date: 20190910
  Receipt Date: 20190910
  Transmission Date: 20191005
  Serious: Yes (Other)
  Sender: FDA-Public Use
  Company Number: NL-TEVA-2019-NL-1103537

PATIENT
  Age: 61 Year
  Sex: Male
  Weight: 79 kg

DRUGS (11)
  1. OMEPRAZOL [Concomitant]
     Active Substance: OMEPRAZOLE
  2. METOCLOPRAMIDE. [Concomitant]
     Active Substance: METOCLOPRAMIDE
  3. METROPOLOL [Concomitant]
     Active Substance: METOPROLOL
  4. CAPECITABINE. [Concomitant]
     Active Substance: CAPECITABINE
  5. ONDANSETRON [Concomitant]
     Active Substance: ONDANSETRON
  6. LOPERAMIDE [Concomitant]
     Active Substance: LOPERAMIDE
  7. PARACETAMOL [Concomitant]
     Active Substance: ACETAMINOPHEN
  8. OXALIPLATINE OPLOSSING VOOR INFUUS, 5 MG/ML (MILLIGRAM PER MILLILITER) [Suspect]
     Active Substance: OXALIPLATIN
     Indication: RECTOSIGMOID CANCER METASTATIC
     Dosage: 130 MG PER DAG
     Dates: start: 20190712, end: 20190712
  9. DEXAMETHASON [Concomitant]
     Active Substance: DEXAMETHASONE
  10. LISINOPRIL. [Concomitant]
     Active Substance: LISINOPRIL
  11. BEVACIZUMAB. [Concomitant]
     Active Substance: BEVACIZUMAB

REACTIONS (1)
  - Polyneuropathy [Recovering/Resolving]

NARRATIVE: CASE EVENT DATE: 20190712
